FAERS Safety Report 7221256-6 (Version None)
Quarter: 2011Q1

REPORT INFORMATION
  Report Type: 
  Country: None (occurrence: None)
  Receive Date: 20110112
  Receipt Date: 20110105
  Transmission Date: 20110831
  Serious: Yes (Death, Hospitalization, Other)
  Sender: FDA-Public Use
  Company Number: JP-PFIZER INC-2010178760

PATIENT
  Age: 82 Year
  Sex: Female

DRUGS (4)
  1. FERROUS CITRATE [Concomitant]
     Route: 048
  2. VESICARE [Concomitant]
     Route: 048
  3. ZITHROMAX [Suspect]
     Dosage: UNK
     Route: 048
  4. SYMMETREL [Concomitant]
     Route: 048

REACTIONS (2)
  - PLATELET COUNT DECREASED [None]
  - PNEUMONIA [None]
